FAERS Safety Report 7346600-0 (Version None)
Quarter: 2011Q1

REPORT INFORMATION
  Report Type: 
  Country: None (occurrence: None)
  Receive Date: 20110311
  Receipt Date: 20110304
  Transmission Date: 20110831
  Serious: Yes (Hospitalization)
  Sender: FDA-Public Use
  Company Number: CN-NOVOPROD-324463

PATIENT
  Age: 50 Year
  Sex: Female
  Weight: 62 kg

DRUGS (1)
  1. NOVONORM [Suspect]
     Indication: TYPE 2 DIABETES MELLITUS
     Dosage: 1 MG, TID
     Route: 048
     Dates: end: 20110304

REACTIONS (2)
  - RASH GENERALISED [None]
  - GENERALISED OEDEMA [None]
